FAERS Safety Report 9639008 (Version 2)
Quarter: 2013Q4

REPORT INFORMATION
  Report Type: Spontaneous
  Country: GB (occurrence: None)
  Receive Date: 20131018
  Receipt Date: 20131025
  Transmission Date: 20140711
  Serious: Yes (Hospitalization)
  Sender: FDA-Public Use
  Company Number: SYM-2013-11661

PATIENT
  Age: 61 Year
  Sex: Male

DRUGS (7)
  1. 5 FU (FLUOROURACIL) [Suspect]
     Indication: COLORECTAL CANCER METASTATIC
     Dates: start: 20130111, end: 20130111
  2. AFLIBERCEPT [Suspect]
     Indication: COLORECTAL CANCER METASTATIC
     Dates: start: 20130111, end: 20130111
  3. IRINOTECAN (IRINOTECAN) [Suspect]
     Indication: COLORECTAL CANCER METASTATIC
     Dates: start: 20130111, end: 20130111
  4. LEUCOVORIN (FOLINIC ACID) [Suspect]
     Indication: COLORECTAL CANCER METASTATIC
     Dates: start: 20130111, end: 20130111
  5. ANALGESICS [Concomitant]
  6. OMEPRAZOLE [Concomitant]
  7. LOPERAMIDE [Concomitant]

REACTIONS (1)
  - Pulmonary embolism [None]
